FAERS Safety Report 25047204 (Version 2)
Quarter: 2025Q2

REPORT INFORMATION
  Report Type: Spontaneous
  Country: CA (occurrence: CA)
  Receive Date: 20250306
  Receipt Date: 20250505
  Transmission Date: 20250716
  Serious: Yes (Death, Other)
  Sender: PFIZER
  Company Number: CA-PFIZER INC-202500050050

PATIENT
  Age: 72 Year
  Sex: Female

DRUGS (1)
  1. ABRILADA [Suspect]
     Active Substance: ADALIMUMAB-AFZB
     Indication: Crohn^s disease
     Route: 058
     Dates: start: 20220503

REACTIONS (3)
  - Assisted suicide [Fatal]
  - Neurodegenerative disorder [Unknown]
  - Frontotemporal dementia [Unknown]

NARRATIVE: CASE EVENT DATE: 20230101
